FAERS Safety Report 17024904 (Version 1)
Quarter: 2019Q4

REPORT INFORMATION
  Report Type: Spontaneous
  Country: US (occurrence: US)
  Receive Date: 20191008
  Receipt Date: 20191008
  Transmission Date: 20200122
  Serious: No
  Sender: FDA-Public Use
  Company Number: None

PATIENT
  Age: 68 Year
  Sex: Male

DRUGS (1)
  1. INFLIXIMAB [Suspect]
     Active Substance: INFLIXIMAB
     Indication: DRUG HYPERSENSITIVITY
     Dates: start: 20190613, end: 20190613

REACTIONS (3)
  - Feeling hot [None]
  - Dysphagia [None]
  - Anaphylactic reaction [None]

NARRATIVE: CASE EVENT DATE: 20190613
